FAERS Safety Report 19668753 (Version 6)
Quarter: 2022Q1

REPORT INFORMATION
  Report Type: Report from Study
  Country: US (occurrence: US)
  Receive Date: 20210806
  Receipt Date: 20220311
  Transmission Date: 20220423
  Serious: Yes (Life-Threatening, Other)
  Sender: FDA-Public Use
  Company Number: US-AUROBINDO-AUR-APL-2021-033852

PATIENT
  Age: 73 Year
  Sex: Male
  Weight: 93.3 kg

DRUGS (3)
  1. BELINOSTAT [Suspect]
     Active Substance: BELINOSTAT
     Indication: Acute myeloid leukaemia
     Dosage: 6976 MILLIGRAM
     Route: 065
     Dates: start: 20200714
  2. BELINOSTAT [Suspect]
     Active Substance: BELINOSTAT
     Dosage: 8720 MILLIGRAM
     Route: 065
     Dates: start: 20200803
  3. PEVONEDISTAT HYDROCHLORIDE [Suspect]
     Active Substance: PEVONEDISTAT HYDROCHLORIDE
     Indication: Product used for unknown indication
     Dosage: 165 MILLIGRAM
     Route: 065

REACTIONS (13)
  - Platelet count decreased [Unknown]
  - Anaemia [Unknown]
  - Alanine aminotransferase increased [Unknown]
  - Aspartate aminotransferase increased [Unknown]
  - Hypertriglyceridaemia [Unknown]
  - Supraventricular tachycardia [Unknown]
  - Fatigue [Unknown]
  - Dizziness [Unknown]
  - Obesity [Unknown]
  - Hypotension [Unknown]
  - Blood lactate dehydrogenase increased [Unknown]
  - Hypocalcaemia [Unknown]
  - Atrial flutter [Unknown]

NARRATIVE: CASE EVENT DATE: 20200714
